FAERS Safety Report 5135196-X (Version None)
Quarter: 2006Q4

REPORT INFORMATION
  Report Type: 
  Country: None (occurrence: None)
  Receive Date: 20061026
  Receipt Date: 20061012
  Transmission Date: 20070319
  Serious: Yes (Other)
  Sender: FDA-Public Use
  Company Number: PHNU2006DE03433

PATIENT
  Age: 5 Year
  Sex: Male
  Weight: 23 kg

DRUGS (3)
  1. TEGRETOL [Suspect]
     Indication: EPILEPSY
  2. TEGRETOL [Suspect]
     Dosage: 900 MG/DAY
     Route: 048
     Dates: start: 20060101
  3. DIAZEPAM [Concomitant]
     Dosage: UNK, IRD
     Route: 054

REACTIONS (5)
  - AGGRESSION [None]
  - CONDITION AGGRAVATED [None]
  - CONVULSION [None]
  - PERFORMANCE STATUS DECREASED [None]
  - STOMACH DISCOMFORT [None]
